FAERS Safety Report 17403726 (Version 1)
Quarter: 2020Q1

REPORT INFORMATION
  Report Type: Spontaneous
  Country: US (occurrence: US)
  Receive Date: 20200211
  Receipt Date: 20200211
  Transmission Date: 20200409
  Serious: No
  Sender: FDA-Public Use
  Company Number: US-PERRIGO-19US005959

PATIENT
  Sex: Female

DRUGS (4)
  1. THYROID THERAPY [Concomitant]
     Active Substance: UNSPECIFIED INGREDIENT
     Indication: THYROID DISORDER
     Dosage: UNK
     Route: 065
  2. CETIRIZINE HYDROCHLORIDE. [Suspect]
     Active Substance: CETIRIZINE HYDROCHLORIDE
     Indication: UPPER-AIRWAY COUGH SYNDROME
  3. CETIRIZINE HYDROCHLORIDE. [Suspect]
     Active Substance: CETIRIZINE HYDROCHLORIDE
     Indication: OROPHARYNGEAL PAIN
     Dosage: 10 MG, NIGHTLY
     Route: 048
     Dates: start: 20190510, end: 20190511
  4. LOSARTAN. [Concomitant]
     Active Substance: LOSARTAN
     Indication: HYPERTENSION
     Dosage: 25 MG
     Route: 065
     Dates: start: 2013

REACTIONS (3)
  - Palpitations [Recovered/Resolved]
  - Somnolence [Recovered/Resolved]
  - Off label use [Recovered/Resolved]

NARRATIVE: CASE EVENT DATE: 20190510
